FAERS Safety Report 4754326-2 (Version None)
Quarter: 2005Q3

REPORT INFORMATION
  Report Type: 
  Country: None (occurrence: None)
  Receive Date: 20050825
  Receipt Date: 20050825
  Transmission Date: 20060218
  Serious: Yes (Disabling)
  Sender: FDA-Public Use
  Company Number: None

PATIENT
  Sex: Female
  Weight: 74.8435 kg

DRUGS (2)
  1. TOPAMAX [Suspect]
     Indication: MIGRAINE
     Dosage: 25MG  ONCE AT BEDTIME  PO
     Route: 048
     Dates: start: 20050810, end: 20050819
  2. TOPAMAX [Suspect]
     Indication: MIGRAINE
     Dosage: 50 MG  ONCE AT BEDTIME X 1   PO
     Route: 048
     Dates: start: 20050820, end: 20050820

REACTIONS (7)
  - ANGLE CLOSURE GLAUCOMA [None]
  - CORNEAL OPACITY [None]
  - EMOTIONAL DISTRESS [None]
  - INTRAOCULAR PRESSURE INCREASED [None]
  - MYOPIA [None]
  - VISION BLURRED [None]
  - VISUAL ACUITY REDUCED [None]
